FAERS Safety Report 20708068 (Version 1)
Quarter: 2022Q2

REPORT INFORMATION
  Report Type: Spontaneous
  Country: GB (occurrence: GB)
  Receive Date: 20220414
  Receipt Date: 20220414
  Transmission Date: 20220720
  Serious: Yes (Disabling, Other)
  Sender: FDA-Public Use
  Company Number: GB-MHRA-ADR 26780766

PATIENT
  Age: 59 Year
  Sex: Female
  Weight: 84 kg

DRUGS (2)
  1. ATORVASTATIN [Suspect]
     Active Substance: ATORVASTATIN
     Indication: Product used for unknown indication
     Dosage: 20 MILLIGRAM
     Route: 048
     Dates: start: 20150421, end: 202107
  2. QUETIAPINE [Suspect]
     Active Substance: QUETIAPINE
     Indication: Product used for unknown indication
     Dosage: 75 MILLIGRAM
     Route: 048
     Dates: start: 20180523, end: 202107

REACTIONS (6)
  - Mobility decreased [Recovered/Resolved]
  - Tendinous contracture [Recovering/Resolving]
  - Headache [Recovering/Resolving]
  - Weight increased [Recovered/Resolved]
  - Dizziness [Recovering/Resolving]
  - Suicidal ideation [Recovering/Resolving]
